FAERS Safety Report 6839063-2 (Version None)
Quarter: 2010Q3

REPORT INFORMATION
  Report Type: 
  Country: None (occurrence: None)
  Receive Date: 20100714
  Receipt Date: 20100708
  Transmission Date: 20110219
  Serious: Yes (Hospitalization)
  Sender: FDA-Public Use
  Company Number: US-BIOGENIDEC-2010BI015136

PATIENT
  Age: 58 Year
  Sex: Female

DRUGS (2)
  1. AVONEX [Suspect]
     Indication: MULTIPLE SCLEROSIS
     Route: 030
     Dates: start: 20081117
  2. AVONEX [Suspect]
     Route: 030
     Dates: start: 20000807, end: 20040516

REACTIONS (3)
  - BREAST CANCER STAGE I [None]
  - CONVULSION [None]
  - METASTASES TO LYMPH NODES [None]
